FAERS Safety Report 6180233-7 (Version None)
Quarter: 2009Q2

REPORT INFORMATION
  Report Type: 
  Country: None (occurrence: None)
  Receive Date: 20090504
  Receipt Date: 20090424
  Transmission Date: 20091009
  Serious: Yes (Hospitalization)
  Sender: FDA-Public Use
  Company Number: 2009AL002425

PATIENT
  Age: 10 Month
  Sex: Female

DRUGS (2)
  1. TRAMADOL HCL [Suspect]
  2. HYDROXYZINE [Concomitant]

REACTIONS (13)
  - ACIDOSIS [None]
  - ASPARTATE AMINOTRANSFERASE INCREASED [None]
  - CONVULSION [None]
  - DIARRHOEA [None]
  - DRUG SCREEN POSITIVE [None]
  - FALL [None]
  - GRAND MAL CONVULSION [None]
  - IRON DEFICIENCY ANAEMIA [None]
  - IRRITABILITY [None]
  - RESPIRATORY DISORDER [None]
  - SINUSITIS [None]
  - TARDIVE DYSKINESIA [None]
  - TONIC CONVULSION [None]
